FAERS Safety Report 5828496-9 (Version None)
Quarter: 2008Q3

REPORT INFORMATION
  Report Type: 
  Country: None (occurrence: None)
  Receive Date: 20080731
  Receipt Date: 20080722
  Transmission Date: 20090109
  Serious: Yes (Other)
  Sender: FDA-Public Use
  Company Number: US-JNJFOC-20080706086

PATIENT
  Sex: Male
  Weight: 136.08 kg

DRUGS (1)
  1. LEVAQUIN [Suspect]
     Indication: SKIN INFECTION

REACTIONS (3)
  - INGUINAL HERNIA [None]
  - MUSCLE SPASMS [None]
  - NEPHROLITHIASIS [None]
